FAERS Safety Report 4886705-7 (Version None)
Quarter: 2006Q1

REPORT INFORMATION
  Report Type: 
  Country: None (occurrence: None)
  Receive Date: 20060120
  Receipt Date: 20050823
  Transmission Date: 20060701
  Serious: Yes (Other)
  Sender: FDA-Public Use
  Company Number: US-ROCHE-415478

PATIENT
  Age: 42 Year
  Sex: Female

DRUGS (4)
  1. PEGASYS [Suspect]
     Indication: HEPATITIS C
     Route: 058
     Dates: start: 20031101, end: 20040915
  2. COPEGUS [Suspect]
     Indication: HEPATITIS C
     Route: 048
     Dates: start: 20031101, end: 20040915
  3. ENBREL [Suspect]
     Indication: ARTHRITIS
     Route: 058
     Dates: end: 20050615
  4. ULTRAM [Concomitant]
     Indication: ARTHRITIS
     Dates: end: 20050819

REACTIONS (7)
  - CONVULSION [None]
  - COUGH [None]
  - HEADACHE [None]
  - HYSTERECTOMY [None]
  - ORAL FUNGAL INFECTION [None]
  - PRURITUS [None]
  - RECTOCELE REPAIR [None]
